FAERS Safety Report 9006759 (Version 2)
Quarter: 2013Q1

REPORT INFORMATION
  Report Type: Spontaneous
  Country: US (occurrence: US)
  Receive Date: 20130110
  Receipt Date: 20130116
  Transmission Date: 20140127
  Serious: Yes (Hospitalization)
  Sender: FDA-Public Use
  Company Number: US-ROCHE-1177497

PATIENT
  Sex: Female
  Weight: 83.54 kg

DRUGS (13)
  1. XOLAIR [Suspect]
     Indication: PRODUCT USED FOR UNKNOWN INDICATION
     Route: 042
  2. LEVAQUIN [Concomitant]
  3. PREDNISONE [Concomitant]
     Route: 065
  4. ASMANEX [Concomitant]
     Route: 065
  5. GUIATUSS AC [Concomitant]
     Dosage: 10 MG /100 MG PER 5 ML SYRUP 1-2 TSP Q6 PM COUGH
     Route: 065
  6. ASPIRIN [Concomitant]
     Route: 065
  7. TYLENOL [Concomitant]
     Route: 065
  8. VENTOLIN HFA [Concomitant]
     Dosage: 90MCG PER ACTUATION ORAL INHALER 2 PUFFS PM
     Route: 048
  9. HYDROCHLOROTHIAZIDE [Concomitant]
     Route: 065
  10. ACIPHEX [Concomitant]
     Route: 065
  11. ASTEPRO [Concomitant]
     Dosage: 0.1%
     Route: 045
  12. CITALOPRAM HYDROBROMIDE [Concomitant]
     Route: 065
  13. LOMOTIL [Concomitant]
     Route: 065

REACTIONS (6)
  - Asthenia [Unknown]
  - Paraesthesia [Unknown]
  - Paraesthesia [Unknown]
  - Paraesthesia oral [Unknown]
  - Cerebrovascular accident [Unknown]
  - Fall [Unknown]
